FAERS Safety Report 21904055 (Version 1)
Quarter: 2023Q1

REPORT INFORMATION
  Report Type: Spontaneous
  Country: JP (occurrence: JP)
  Receive Date: 20230124
  Receipt Date: 20230124
  Transmission Date: 20230418
  Serious: No
  Sender: FDA-Public Use
  Company Number: JP-002147023-NVSJ2023JP000993

PATIENT
  Sex: Male

DRUGS (2)
  1. TERBINAFINE [Suspect]
     Active Substance: TERBINAFINE
     Indication: Product used for unknown indication
     Dosage: 125 MG, QD, TAKE AT BEDTIME
     Route: 048
  2. TERBINAFINE [Suspect]
     Active Substance: TERBINAFINE
     Dosage: 125 MG, QD, TAKE AFTER MEAL
     Route: 048

REACTIONS (1)
  - Intercepted product prescribing error [Unknown]
